FAERS Safety Report 8033952-1 (Version None)
Quarter: 2011Q4

REPORT INFORMATION
  Report Type: 
  Country: None (occurrence: None)
  Receive Date: 20111202
  Receipt Date: 20110301
  Transmission Date: 20120403
  Serious: Yes (Other)
  Sender: FDA-Public Use
  Company Number: WAES 0708USA01387

PATIENT
  Age: 53 Year
  Sex: Female

DRUGS (4)
  1. HYDROCODONE BITARTRATE [Concomitant]
  2. FOSAMAX [Suspect]
     Indication: OSTEOPOROSIS
     Dosage: 70 MG/PO
     Route: 048
     Dates: start: 20030730, end: 20061005
  3. CYCLOBENZAPRINE HCL [Concomitant]
  4. ESTRADERM [Concomitant]

REACTIONS (12)
  - DENTAL CARIES [None]
  - GINGIVAL RECESSION [None]
  - BREAST MASS [None]
  - GINGIVITIS [None]
  - MELANOCYTIC NAEVUS [None]
  - OSTEOMYELITIS [None]
  - CATARACT [None]
  - PERIODONTITIS [None]
  - OSTEONECROSIS [None]
  - LOOSE TOOTH [None]
  - RESORPTION BONE INCREASED [None]
  - PYREXIA [None]
